FAERS Safety Report 4349880-9 (Version None)
Quarter: 2004Q2

REPORT INFORMATION
  Report Type: 
  Country: None (occurrence: None)
  Receive Date: 20040428
  Receipt Date: 20040428
  Transmission Date: 20050107
  Serious: Yes (Other)
  Sender: FDA-Public Use
  Company Number: None

PATIENT
  Age: 14 Year
  Sex: Male

DRUGS (2)
  1. VALPROIC ACID SPRAY [Suspect]
     Indication: CONVULSION
     Dosage: 250 MG (5CC) TID PO
     Route: 048
     Dates: start: 20040101
  2. DEPAKENE [Suspect]

REACTIONS (3)
  - CONVULSION [None]
  - INCONTINENCE [None]
  - PHARMACEUTICAL PRODUCT COMPLAINT [None]
